FAERS Safety Report 9383096 (Version 1)
Quarter: 2013Q3

REPORT INFORMATION
  Report Type: Spontaneous
  Country: US (occurrence: US)
  Receive Date: 20130704
  Receipt Date: 20130704
  Transmission Date: 20140515
  Serious: No
  Sender: FDA-Public Use
  Company Number: US-JNJFOC-20130615512

PATIENT
  Sex: Female

DRUGS (2)
  1. SANDOZ FENTANYL MATRIX TRANSDERMAL SYSTEM [Suspect]
     Indication: BACK PAIN
     Route: 062
     Dates: start: 2012
  2. SANDOZ FENTANYL MATRIX TRANSDERMAL SYSTEM [Suspect]
     Indication: ARTHRALGIA
     Route: 062
     Dates: start: 2012

REACTIONS (1)
  - Wrong technique in drug usage process [Not Recovered/Not Resolved]
